FAERS Safety Report 16235797 (Version 1)
Quarter: 2019Q2

REPORT INFORMATION
  Report Type: Report from Study
  Country: US (occurrence: US)
  Receive Date: 20190424
  Receipt Date: 20190424
  Transmission Date: 20190711
  Serious: Yes (Other)
  Sender: FDA-Public Use
  Company Number: PHEH2019US016989

PATIENT
  Sex: Female
  Weight: 65.31 kg

DRUGS (1)
  1. COSENTYX [Suspect]
     Active Substance: SECUKINUMAB
     Indication: PSORIATIC ARTHROPATHY
     Dosage: 300 MG, Q4W
     Route: 058
     Dates: start: 20170814

REACTIONS (3)
  - Peptic ulcer [Unknown]
  - Anaemia [Unknown]
  - Liver disorder [Unknown]

NARRATIVE: CASE EVENT DATE: 2018
